FAERS Safety Report 7152364-6 (Version None)
Quarter: 2010Q4

REPORT INFORMATION
  Report Type: 
  Country: None (occurrence: None)
  Receive Date: 20101123
  Receipt Date: 20101108
  Transmission Date: 20110411
  Serious: Yes (Hospitalization)
  Sender: FDA-Public Use
  Company Number: 8053315

PATIENT
  Sex: Female
  Weight: 68 kg

DRUGS (8)
  1. CERTOLIZUMAB PEGOL (CERTOLIZUMAB PEGOL) [Suspect]
     Indication: CROHN'S DISEASE
     Dosage: (400 MG 1X/2 WEEKS SUBCUTANEOUS), (400 MG, DOSE FREQ: ONCE MONTHLY - NR OF DOSES: 6 SUBCUTANEOUS)
     Route: 058
     Dates: start: 20090528, end: 20090101
  2. CERTOLIZUMAB PEGOL (CERTOLIZUMAB PEGOL) [Suspect]
     Indication: CROHN'S DISEASE
     Dosage: (400 MG 1X/2 WEEKS SUBCUTANEOUS), (400 MG, DOSE FREQ: ONCE MONTHLY - NR OF DOSES: 6 SUBCUTANEOUS)
     Route: 058
     Dates: start: 20090101
  3. SULFASALAZINE [Concomitant]
  4. AZATHIOPRINE [Concomitant]
  5. ENCORTON /00044702/ [Concomitant]
  6. ACIDUM FOLICUM [Concomitant]
  7. NOLICIN [Concomitant]
  8. NETROMYCIN [Concomitant]

REACTIONS (3)
  - HAEMATOCRIT DECREASED [None]
  - HAEMOGLOBIN DECREASED [None]
  - URINARY TRACT INFECTION [None]
